FAERS Safety Report 14174212 (Version 1)
Quarter: 2017Q4

REPORT INFORMATION
  Report Type: Spontaneous
  Country: US (occurrence: None)
  Receive Date: 20171109
  Receipt Date: 20171109
  Transmission Date: 20180321
  Serious: Yes (Life-Threatening, Hospitalization, Other)
  Sender: FDA-Public Use
  Company Number: None

PATIENT
  Age: 54 Year
  Sex: Male
  Weight: 73.94 kg

DRUGS (8)
  1. REFRESHER OPTIVE LUBRICANT EYE DROPS [Concomitant]
  2. RESTASIS [Concomitant]
     Active Substance: CYCLOSPORINE
  3. GENTEAL TEARS [Concomitant]
  4. FLUOROMETHOLONE OPTHALMIC SUSPENSION USP [Concomitant]
  5. OFLOXACIN OPTHALMIC SOLUTION, USP [Concomitant]
  6. CENTRUM SILVER MULTIVITAMIN [Concomitant]
  7. LUBRICANT EYE GEL [Concomitant]
  8. SULFAMETHOXAZOLE + TRIMETHOPRIM (NDC# 53489-0146-05) [Suspect]
     Active Substance: SULFAMETHOXAZOLE\TRIMETHOPRIM
     Indication: INFECTION
     Route: 048
     Dates: start: 20170831, end: 20170914

REACTIONS (12)
  - Stevens-Johnson syndrome [None]
  - Toxic epidermal necrolysis [None]
  - Oesophageal disorder [None]
  - Amniotic membrane graft [None]
  - Skin graft [None]
  - Eye disorder [None]
  - Skin disorder [None]
  - Pneumonia [None]
  - Delirium [None]
  - Drug hypersensitivity [None]
  - Malaise [None]
  - Lung disorder [None]

NARRATIVE: CASE EVENT DATE: 20170917
